FAERS Safety Report 9188384 (Version 1)
Quarter: 2013Q1

REPORT INFORMATION
  Report Type: Spontaneous
  Country: US (occurrence: US)
  Receive Date: 20130325
  Receipt Date: 20130325
  Transmission Date: 20140127
  Serious: Yes (Life-Threatening, Hospitalization)
  Sender: FDA-Public Use
  Company Number: PHEH2013US006549

PATIENT
  Age: 50 Year
  Sex: Female

DRUGS (12)
  1. GILENYA [Suspect]
     Indication: MULTIPLE SCLEROSIS
     Dosage: 0.5 MG, QD
     Route: 048
     Dates: start: 20120614, end: 20130313
  2. PHENYTOIN SODIUM EXTENDED [Suspect]
     Indication: CONVULSION
     Dosage: 3 DF, UNK, QPM
     Route: 048
  3. ZOLOFT [Concomitant]
     Dosage: 1 DF, QD
     Route: 048
  4. REQUIP [Concomitant]
     Dosage: 1 DF, TID
     Route: 048
  5. FLOMAX [Concomitant]
     Dosage: 1 DF, QD
     Route: 048
  6. AMANTADINE [Concomitant]
     Dosage: 1 DF, QD
     Route: 048
  7. LEVETIRACETAM [Concomitant]
     Dosage: 1 DF, BID
     Route: 048
  8. BACLOFEN [Concomitant]
     Dosage: 1 DF, BID
     Route: 048
  9. BACLOFEN [Concomitant]
     Dosage: 40 MG, UNK
  10. ADVAIR [Concomitant]
     Dosage: 1 DF, BID
  11. METHADONE [Concomitant]
     Dosage: 1 DF, UNK
     Route: 048
  12. METHADONE [Concomitant]
     Dosage: 20 MG, Q6H

REACTIONS (7)
  - Epilepsy [Recovering/Resolving]
  - Convulsion [Recovering/Resolving]
  - Tremor [Recovering/Resolving]
  - Foaming at mouth [Recovering/Resolving]
  - Dyspnoea [Recovering/Resolving]
  - Mood altered [Recovering/Resolving]
  - Poor quality sleep [Recovering/Resolving]
